FAERS Safety Report 7072694-6 (Version None)
Quarter: 2010Q4

REPORT INFORMATION
  Report Type: 
  Country: None (occurrence: None)
  Receive Date: 20101029
  Receipt Date: 20100302
  Transmission Date: 20110411
  Serious: No
  Sender: FDA-Public Use
  Company Number: A0847565A

PATIENT
  Age: 61 Year
  Sex: Female

DRUGS (2)
  1. ADVAIR DISKUS 100/50 [Suspect]
     Indication: RESPIRATORY TRACT INFECTION VIRAL
     Dosage: 1PUFF SINGLE DOSE
     Route: 055
     Dates: start: 20100301
  2. AVELOX [Concomitant]

REACTIONS (2)
  - EYE SWELLING [None]
  - OROPHARYNGEAL PAIN [None]
